FAERS Safety Report 20059304 (Version 1)
Quarter: 2021Q4

REPORT INFORMATION
  Report Type: Spontaneous
  Country: ZA (occurrence: ZA)
  Receive Date: 20211111
  Receipt Date: 20211111
  Transmission Date: 20220303
  Serious: Yes (Death)
  Sender: FDA-Public Use
  Company Number: ZA-NOVOPROD-799449

PATIENT
  Sex: Male

DRUGS (6)
  1. CELEBREX [Concomitant]
     Active Substance: CELECOXIB
     Indication: Inflammation
     Dosage: 200 MG
     Route: 048
     Dates: end: 202103
  2. AMITRIPTYLINE HYDROCHLORIDE [Concomitant]
     Active Substance: AMITRIPTYLINE HYDROCHLORIDE
     Indication: Depression
     Dosage: 25 MG
     Route: 048
     Dates: end: 202103
  3. PIMECLONE HYDROCHLORIDE [Concomitant]
     Active Substance: PIMECLONE HYDROCHLORIDE
     Indication: Diuretic therapy
     Dosage: 25 MG
     Route: 048
     Dates: end: 202103
  4. PANTOCID [MONALAZONE DISODIUM] [Concomitant]
     Indication: Ulcer
     Dosage: 40 MG
     Route: 048
     Dates: end: 202103
  5. GABAPENTIN [Concomitant]
     Active Substance: GABAPENTIN
     Indication: Epilepsy
     Dosage: 100 MG
     Route: 048
     Dates: end: 202103
  6. NOVORAPID [Suspect]
     Active Substance: INSULIN ASPART
     Indication: Blood insulin abnormal
     Dosage: UNK
     Route: 058
     Dates: end: 202103

REACTIONS (1)
  - Death [Fatal]
